FAERS Safety Report 24880126 (Version 1)
Quarter: 2025Q1

REPORT INFORMATION
  Report Type: Spontaneous
  Country: CA (occurrence: CA)
  Receive Date: 20250123
  Receipt Date: 20250123
  Transmission Date: 20250409
  Serious: Yes (Other)
  Sender: PURDUE
  Company Number: CA-PURDUE-USA-2025-0314776

PATIENT
  Age: 39 Year
  Sex: Female

DRUGS (6)
  1. ACETAMINOPHEN\OXYCODONE HYDROCHLORIDE [Suspect]
     Active Substance: ACETAMINOPHEN\OXYCODONE HYDROCHLORIDE
     Indication: Product used for unknown indication
     Route: 045
  2. COCAINE [Suspect]
     Active Substance: COCAINE
     Indication: Product used for unknown indication
     Route: 045
     Dates: start: 2010
  3. COCAINE [Suspect]
     Active Substance: COCAINE
     Route: 045
  4. HEROIN [Suspect]
     Active Substance: DIAMORPHINE
     Indication: Product used for unknown indication
     Route: 045
  5. ACETAMINOPHEN [Suspect]
     Active Substance: ACETAMINOPHEN
     Indication: Product used for unknown indication
     Dosage: 10 TABLET, DAILY
     Route: 045
     Dates: start: 202209
  6. ACETAMINOPHEN [Suspect]
     Active Substance: ACETAMINOPHEN
     Route: 045

REACTIONS (9)
  - Nasal necrosis [Unknown]
  - Drug abuse [Unknown]
  - Sinus pain [Unknown]
  - Nasal congestion [Unknown]
  - Anosmia [Unknown]
  - Rhinorrhoea [Unknown]
  - Oropharyngeal discomfort [Unknown]
  - Odynophagia [Unknown]
  - Incorrect route of product administration [Unknown]
